FAERS Safety Report 20135871 (Version 1)
Quarter: 2021Q4

REPORT INFORMATION
  Report Type: Spontaneous
  Country: US (occurrence: None)
  Receive Date: 20211201
  Receipt Date: 20211201
  Transmission Date: 20220303
  Serious: Yes (Hospitalization)
  Sender: FDA-Public Use
  Company Number: None

PATIENT
  Age: 60 Year
  Sex: Female
  Weight: 58 kg

DRUGS (1)
  1. LISINOPRIL [Suspect]
     Active Substance: LISINOPRIL
     Indication: Hypertension
     Dosage: FREQUENCY : DAILY;?
     Route: 048
     Dates: start: 20161020, end: 20210808

REACTIONS (5)
  - Angioedema [None]
  - Laryngitis viral [None]
  - Vocal cord polyp [None]
  - Odynophagia [None]
  - Dysphagia [None]

NARRATIVE: CASE EVENT DATE: 20210809
